FAERS Safety Report 7714895-7 (Version None)
Quarter: 2011Q3

REPORT INFORMATION
  Report Type: 
  Country: None (occurrence: None)
  Receive Date: 20110829
  Receipt Date: 20110330
  Transmission Date: 20111222
  Serious: No
  Sender: FDA-Public Use
  Company Number: US-GLAXOSMITHKLINE-A0920704A

PATIENT
  Age: 27 Year
  Sex: Female

DRUGS (4)
  1. DOSTINEX [Concomitant]
  2. MALARONE [Suspect]
     Indication: MALARIA PROPHYLAXIS
     Route: 048
     Dates: start: 20110201
  3. ORAL CONTRACEPTIVE [Concomitant]
  4. LEVOXYL [Concomitant]

REACTIONS (2)
  - DIARRHOEA [None]
  - APHTHOUS STOMATITIS [None]
